FAERS Safety Report 9646258 (Version 1)
Quarter: 2013Q4

REPORT INFORMATION
  Report Type: Spontaneous
  Country: FR (occurrence: FR)
  Receive Date: 20131025
  Receipt Date: 20131025
  Transmission Date: 20140711
  Serious: Yes (Hospitalization)
  Sender: FDA-Public Use
  Company Number: FR-B.I. PHARMACEUTICALS,INC./RIDGEFIELD-2013-FF-02572FF

PATIENT
  Age: 39 Year
  Sex: Female

DRUGS (5)
  1. CATAPRESSAN [Suspect]
     Indication: RETAINED PLACENTA OR MEMBRANES
     Dosage: 75 MCG
     Route: 008
     Dates: start: 20120825, end: 20120825
  2. AMOXICILLIN PANPHARMA [Suspect]
     Route: 042
     Dates: start: 20120825, end: 20120825
  3. SYNTOCINON [Suspect]
     Indication: RETAINED PLACENTA OR MEMBRANES
     Dosage: 20 U
     Route: 042
     Dates: start: 20120825, end: 20120825
  4. LIDOCAINE AGUETTANT [Suspect]
     Indication: RETAINED PLACENTA OR MEMBRANES
     Dosage: 200 MG
     Route: 008
     Dates: start: 20120825, end: 20120825
  5. SUFENTANIL MYLAN [Suspect]
     Indication: RETAINED PLACENTA OR MEMBRANES
     Dosage: 10 MCG
     Route: 008
     Dates: start: 20120825, end: 20120825

REACTIONS (3)
  - Dyspnoea [Recovered/Resolved]
  - Tachycardia [Recovered/Resolved]
  - Hypotension [Recovered/Resolved]
